FAERS Safety Report 5401043-1 (Version None)
Quarter: 2007Q3

REPORT INFORMATION
  Report Type: 
  Country: None (occurrence: None)
  Receive Date: 20070726
  Receipt Date: 20070712
  Transmission Date: 20080115
  Serious: Yes (Hospitalization)
  Sender: FDA-Public Use
  Company Number: 2007US000737

PATIENT
  Age: 5 Year
  Sex: Male
  Weight: 20.9 kg

DRUGS (1)
  1. PROTOPIC [Suspect]
     Indication: ECZEMA
     Dosage: UID/QD, TOPICAL
     Route: 061
     Dates: start: 20060420

REACTIONS (4)
  - GASTROENTERITIS [None]
  - HEADACHE [None]
  - MASTOID ABSCESS [None]
  - PERIORBITAL CELLULITIS [None]
